FAERS Safety Report 6511434-3 (Version None)
Quarter: 2009Q4

REPORT INFORMATION
  Report Type: 
  Country: None (occurrence: None)
  Receive Date: 20091222
  Receipt Date: 20090504
  Transmission Date: 20100525
  Serious: No
  Sender: FDA-Public Use
  Company Number: US-ASTRAZENECA-2009UW06794

PATIENT
  Age: 72 Year
  Sex: Female
  Weight: 71.2 kg

DRUGS (3)
  1. CRESTOR [Suspect]
     Indication: BLOOD CHOLESTEROL
     Route: 048
     Dates: start: 20090101, end: 20090103
  2. NEXIUM [Concomitant]
     Route: 048
  3. MACROBID [Concomitant]
     Route: 048

REACTIONS (1)
  - PARAESTHESIA [None]
